FAERS Safety Report 8024317-7 (Version None)
Quarter: 2012Q1

REPORT INFORMATION
  Report Type: 
  Country: None (occurrence: None)
  Receive Date: 20120105
  Receipt Date: 20111223
  Transmission Date: 20120608
  Serious: Yes (Hospitalization)
  Sender: FDA-Public Use
  Company Number: US-ELI_LILLY_AND_COMPANY-US201201000761

PATIENT
  Sex: Male

DRUGS (1)
  1. FORTEO [Suspect]
     Indication: OSTEOPOROSIS
     Dosage: 20 UG, QD
     Route: 065
     Dates: end: 20111209

REACTIONS (6)
  - ABDOMINAL PAIN [None]
  - BACK DISORDER [None]
  - BACK PAIN [None]
  - MUSCLE SPASMS [None]
  - PAIN [None]
  - BURNING SENSATION [None]
